FAERS Safety Report 5476341-6 (Version None)
Quarter: 2007Q4

REPORT INFORMATION
  Report Type: 
  Country: None (occurrence: None)
  Receive Date: 20071003
  Receipt Date: 20070921
  Transmission Date: 20080405
  Serious: Yes (Hospitalization, Other)
  Sender: FDA-Public Use
  Company Number: GB-PFIZER INC-2007055153

PATIENT
  Age: 62 Year
  Sex: Male

DRUGS (7)
  1. ALPRAZOLAM [Suspect]
     Indication: DEPRESSED MOOD
  2. TEMAZEPAM [Suspect]
     Indication: ANXIETY
  3. DIAZEPAM [Suspect]
     Indication: ANXIETY
  4. LORAZEPAM [Suspect]
     Indication: DEPRESSED MOOD
  5. LORAZEPAM [Suspect]
     Indication: ANXIETY
  6. FLUOXETINE [Concomitant]
  7. ZOPICLONE [Concomitant]

REACTIONS (9)
  - AGITATION [None]
  - ANXIETY [None]
  - DRUG DEPENDENCE [None]
  - DRUG WITHDRAWAL SYNDROME [None]
  - FEAR [None]
  - INTENTIONAL OVERDOSE [None]
  - PARAESTHESIA [None]
  - PSYCHIATRIC SYMPTOM [None]
  - SUICIDE ATTEMPT [None]
